FAERS Safety Report 19407714 (Version 3)
Quarter: 2022Q2

REPORT INFORMATION
  Report Type: Report from Study
  Country: US (occurrence: US)
  Receive Date: 20210612
  Receipt Date: 20220511
  Transmission Date: 20220720
  Serious: Yes (Other)
  Sender: FDA-Public Use
  Company Number: US-ABBVIE-21K-163-3939844-00

PATIENT
  Age: 66 Year
  Sex: Female

DRUGS (2)
  1. RINVOQ [Suspect]
     Active Substance: UPADACITINIB
     Indication: Rheumatoid arthritis
     Route: 048
  2. MODERNA COVID-19 VACCINE [Concomitant]
     Active Substance: ELASOMERAN
     Indication: COVID-19 immunisation
     Dosage: 3RD DOSE
     Route: 030
     Dates: start: 20210801, end: 20210801

REACTIONS (6)
  - Knee arthroplasty [Recovering/Resolving]
  - Hepatic steatosis [Unknown]
  - Post procedural swelling [Unknown]
  - Weight increased [Unknown]
  - Lower limb fracture [Unknown]
  - Medical device site joint pain [Unknown]

NARRATIVE: CASE EVENT DATE: 20200601
